FAERS Safety Report 25252879 (Version 2)
Quarter: 2025Q4

REPORT INFORMATION
  Report Type: Spontaneous
  Country: US (occurrence: US)
  Receive Date: 20250429
  Receipt Date: 20251129
  Transmission Date: 20260118
  Serious: No
  Sender: MERCK SHARP & DOHME LLC
  Company Number: US-009507513-2271665

PATIENT
  Sex: Female
  Weight: 95.2 kg

DRUGS (27)
  1. SOTATERCEPT-CSRK [Suspect]
     Active Substance: SOTATERCEPT-CSRK
     Indication: Product used for unknown indication
  2. SOTATERCEPT-CSRK [Suspect]
     Active Substance: SOTATERCEPT-CSRK
  3. SOTATERCEPT-CSRK [Suspect]
     Active Substance: SOTATERCEPT-CSRK
  4. SOTATERCEPT-CSRK [Suspect]
     Active Substance: SOTATERCEPT-CSRK
  5. REMODULIN [Suspect]
     Active Substance: TREPROSTINIL
     Indication: Pulmonary arterial hypertension
     Dosage: STRENGTH 1MG/ML, FREQUENCY CONTINUOUS
     Route: 042
     Dates: start: 20170322
  6. REMODULIN [Suspect]
     Active Substance: TREPROSTINIL
     Indication: Pulmonary arterial hypertension
     Dosage: CURRENT DOSE 0.125 UG/KG CONTINUOUS
     Route: 042
     Dates: start: 2025
  7. REMODULIN [Suspect]
     Active Substance: TREPROSTINIL
     Indication: Pulmonary arterial hypertension
     Dosage: CURRENT DOSE 0.095 UG/KG CONTINUOUS
     Route: 042
  8. IODINE [Suspect]
     Active Substance: IODINE
     Indication: Product used for unknown indication
  9. FLUTICASONE PROPIONATE [Concomitant]
     Active Substance: FLUTICASONE PROPIONATE
  10. BUMETANIDE [Concomitant]
     Active Substance: BUMETANIDE
  11. BASAGLAR KWIKPEN [Concomitant]
     Active Substance: INSULIN GLARGINE
  12. VITAMIN D2 [Concomitant]
     Active Substance: ERGOCALCIFEROL
  13. CLARITIN-D NOS [Concomitant]
     Active Substance: LORATADINE\PSEUDOEPHEDRINE SULFATE
  14. ACTEMRA ACTPEN [Concomitant]
     Active Substance: TOCILIZUMAB
  15. TADALAFIL [Concomitant]
     Active Substance: TADALAFIL
  16. POTASSIUM CHLORIDE [Concomitant]
     Active Substance: POTASSIUM CHLORIDE
  17. OZEMPIC [Concomitant]
     Active Substance: SEMAGLUTIDE
  18. TRAMADOL HCL [Concomitant]
     Active Substance: TRAMADOL HYDROCHLORIDE
  19. ACETAMINOPHEN [Concomitant]
     Active Substance: ACETAMINOPHEN
  20. OXYGEN [Concomitant]
     Active Substance: OXYGEN
  21. PLAQUENIL [Concomitant]
     Active Substance: HYDROXYCHLOROQUINE SULFATE
  22. METOLAZONE [Concomitant]
     Active Substance: METOLAZONE
  23. IMODIUM A-D [Concomitant]
     Active Substance: LOPERAMIDE HYDROCHLORIDE
  24. OMEPRAZOLE AND SODIUM BICARBONATE [Concomitant]
     Active Substance: OMEPRAZOLE\SODIUM BICARBONATE
  25. METHIMAZOLE [Concomitant]
     Active Substance: METHIMAZOLE
  26. SPIRONOLACTONE [Concomitant]
     Active Substance: SPIRONOLACTONE
  27. MOUNJARO [Concomitant]
     Active Substance: TIRZEPATIDE

REACTIONS (2)
  - Platelet disorder [Unknown]
  - Pruritus [Unknown]
